FAERS Safety Report 21661946 (Version 1)
Quarter: 2022Q4

REPORT INFORMATION
  Report Type: Spontaneous
  Country: US (occurrence: US)
  Receive Date: 20221130
  Receipt Date: 20221130
  Transmission Date: 20230113
  Serious: No
  Sender: FDA-Public Use
  Company Number: US-ABBVIE-4166190

PATIENT
  Age: 16 Year
  Sex: Male
  Weight: 61.234 kg

DRUGS (5)
  1. HUMIRA [Suspect]
     Active Substance: ADALIMUMAB
     Indication: Product used for unknown indication
     Dates: start: 20220831
  2. CONCERTA [Concomitant]
     Active Substance: METHYLPHENIDATE HYDROCHLORIDE
     Indication: Attention deficit hyperactivity disorder
  3. Pfizer BioNTech [Concomitant]
     Indication: COVID-19 immunisation
     Route: 030
     Dates: start: 20211213, end: 20211213
  4. Pfizer BioNTech [Concomitant]
     Indication: COVID-19 immunisation
     Dosage: ER8736
     Route: 030
     Dates: start: 20210610, end: 20210610
  5. Pfizer BioNTech [Concomitant]
     Indication: COVID-19 immunisation
     Dosage: EW0153
     Route: 030
     Dates: start: 20210520, end: 20210520

REACTIONS (2)
  - Injection site reaction [Recovered/Resolved]
  - Wrong technique in product usage process [Recovered/Resolved]

NARRATIVE: CASE EVENT DATE: 20221012
